FAERS Safety Report 20631569 (Version 1)
Quarter: 2022Q1

REPORT INFORMATION
  Report Type: Spontaneous
  Country: US (occurrence: None)
  Receive Date: 20220324
  Receipt Date: 20220324
  Transmission Date: 20220423
  Serious: No
  Sender: FDA-Public Use
  Company Number: None

PATIENT
  Age: 45 Year
  Sex: Male
  Weight: 93.9 kg

DRUGS (1)
  1. DULOXETINE HYDROCHLORIDE [Suspect]
     Active Substance: DULOXETINE HYDROCHLORIDE
     Dates: end: 20220115

REACTIONS (10)
  - Infusion related reaction [None]
  - Wheezing [None]
  - Throat irritation [None]
  - Dysphonia [None]
  - Blood pressure increased [None]
  - Heart rate increased [None]
  - Visual impairment [None]
  - Grip strength decreased [None]
  - Muscle spasms [None]
  - Bronchitis [None]

NARRATIVE: CASE EVENT DATE: 20220315
